FAERS Safety Report 7916461-7 (Version None)
Quarter: 2011Q4

REPORT INFORMATION
  Report Type: 
  Country: None (occurrence: None)
  Receive Date: 20111114
  Receipt Date: 20111025
  Transmission Date: 20120403
  Serious: Yes (Death, Hospitalization)
  Sender: FDA-Public Use
  Company Number: FK201102543

PATIENT
  Age: 69 Year
  Sex: Male

DRUGS (4)
  1. OXALIPLATIN [Suspect]
     Indication: ADENOCARCINOMA
     Dosage: 85 MG/M2, ITNRAVENOUS (NOT OTHERWISE SPECIFIED)
     Route: 042
  2. FOLINIC ACID (FOLINIC ACID) (FOLINIC ACID) [Concomitant]
  3. LISINOPRIL [Concomitant]
  4. FLUOROURACIL [Concomitant]

REACTIONS (8)
  - OEDEMA [None]
  - INFLAMMATION [None]
  - OBSTRUCTIVE AIRWAYS DISORDER [None]
  - ERYTHEMA [None]
  - DYSPNOEA [None]
  - COUGH [None]
  - DIFFUSE ALVEOLAR DAMAGE [None]
  - FATIGUE [None]
